FAERS Safety Report 7357312-1 (Version None)
Quarter: 2011Q1

REPORT INFORMATION
  Report Type: 
  Country: None (occurrence: None)
  Receive Date: 20110308
  Receipt Date: 20110221
  Transmission Date: 20110831
  Serious: Yes (Other)
  Sender: FDA-Public Use
  Company Number: 027970

PATIENT
  Age: 31 Year
  Sex: Female

DRUGS (6)
  1. FOLIC ACID [Concomitant]
  2. ADHAEGON [Concomitant]
  3. KEPPRA [Suspect]
     Indication: CEREBRAL HAEMORRHAGE
     Dosage: 1000 MG QD,
  4. KEPPRA [Suspect]
     Indication: CONVULSION
     Dosage: 1000 MG QD,
  5. ASPIRIN [Concomitant]
  6. PRENATAL VITAMINS [Concomitant]

REACTIONS (3)
  - PREGNANCY [None]
  - ABORTION SPONTANEOUS [None]
  - DRUG EXPOSURE DURING PREGNANCY [None]
